FAERS Safety Report 4686242-9 (Version None)
Quarter: 2005Q2

REPORT INFORMATION
  Report Type: 
  Country: None (occurrence: None)
  Receive Date: 20050609
  Receipt Date: 20041203
  Transmission Date: 20051028
  Serious: Yes (Other)
  Sender: FDA-Public Use
  Company Number: GB-GLAXOSMITHKLINE-B0359768A

PATIENT
  Sex: Female

DRUGS (1)
  1. SEROXAT [Suspect]
     Route: 065

REACTIONS (15)
  - ABNORMAL BEHAVIOUR [None]
  - AFFECT LABILITY [None]
  - COMPLETED SUICIDE [None]
  - DISINHIBITION [None]
  - EUPHORIC MOOD [None]
  - HYPOMANIA [None]
  - ILL-DEFINED DISORDER [None]
  - INCREASED APPETITE [None]
  - IRRITABILITY [None]
  - LIBIDO INCREASED [None]
  - MENTAL STATUS CHANGES [None]
  - OVERDOSE [None]
  - REFUSAL OF TREATMENT BY PATIENT [None]
  - SLEEP DISORDER [None]
  - SUICIDE ATTEMPT [None]
